FAERS Safety Report 8169727-2 (Version None)
Quarter: 2012Q1

REPORT INFORMATION
  Report Type: 
  Country: None (occurrence: None)
  Receive Date: 20120228
  Receipt Date: 20120216
  Transmission Date: 20120608
  Serious: Yes (Hospitalization)
  Sender: FDA-Public Use
  Company Number: US-JNJFOC-20120209977

PATIENT
  Sex: Female
  Weight: 90.72 kg

DRUGS (19)
  1. LOTREL [Concomitant]
     Indication: HYPERTENSION
     Dosage: 5/20MG PER CAPSULE
     Route: 048
  2. OMEPRAZOLE [Concomitant]
     Indication: GASTROOESOPHAGEAL REFLUX DISEASE
     Dosage: 15 MIN BEFORE BREAKFAST
     Route: 048
     Dates: start: 20080101
  3. ZOCOR [Concomitant]
     Indication: BLOOD CHOLESTEROL
     Route: 048
  4. BYETTA [Concomitant]
     Indication: BLOOD INSULIN
     Dosage: 10MCG, 10-15 MINUTES BEFORE BREAKFAST AND SUPPER
     Route: 065
  5. REMICADE [Suspect]
     Indication: RHEUMATOID ARTHRITIS
     Route: 042
  6. MOBIC [Concomitant]
     Indication: RHEUMATOID ARTHRITIS
     Route: 048
     Dates: start: 20070101
  7. IMURAN [Concomitant]
     Indication: RHEUMATOID ARTHRITIS
     Route: 048
     Dates: start: 20070101
  8. PROVIGIL [Concomitant]
     Indication: FATIGUE
     Route: 065
     Dates: start: 20060101
  9. FISH OIL [Concomitant]
     Indication: PRODUCT USED FOR UNKNOWN INDICATION
     Route: 065
  10. METFORMIN HCL [Concomitant]
     Indication: DIABETES MELLITUS
     Route: 048
     Dates: start: 20000101
  11. ACETAMINOPHEN [Concomitant]
     Indication: PAIN
     Route: 065
  12. KLONOPIN [Concomitant]
     Indication: RESTLESS LEGS SYNDROME
     Route: 048
     Dates: start: 20040101
  13. LANTUS [Concomitant]
     Indication: DIABETES MELLITUS
     Dosage: 50 UNITS/SOLUTION
     Route: 058
     Dates: start: 20040101
  14. METOPROLOL TARTRATE [Concomitant]
     Indication: BLOOD PRESSURE
     Route: 048
  15. HYDROCHLOROTHIAZIDE [Concomitant]
     Indication: BLOOD PRESSURE
     Route: 048
     Dates: start: 20070101
  16. IRON WITH VITAMIN C [Concomitant]
     Indication: BLOOD CALCIUM DECREASED
     Dosage: 100/250MG
     Route: 065
     Dates: start: 20070101
  17. POTASSIUM CHLORIDE [Concomitant]
     Indication: BLOOD CALCIUM
     Route: 048
     Dates: start: 20070101
  18. IRON WITH VITAMIN C [Concomitant]
     Indication: BLOOD POTASSIUM DECREASED
     Dosage: 100/250MG
     Route: 065
     Dates: start: 20070101
  19. GEMFIBROZIL [Concomitant]
     Indication: BLOOD CHOLESTEROL
     Dosage: 600MG ONE TWICE DAILY
     Route: 048

REACTIONS (2)
  - INTERVERTEBRAL DISC PROTRUSION [None]
  - PAIN [None]
